FAERS Safety Report 9305969 (Version 1)
Quarter: 2013Q1

REPORT INFORMATION
  Report Type: Spontaneous
  Country: US (occurrence: None)
  Receive Date: 20130222
  Receipt Date: 20130222
  Transmission Date: 20140127
  Serious: Yes (Hospitalization)
  Sender: FDA-Public Use
  Company Number: 2013S1000212

PATIENT
  Age: 79 Year
  Sex: Female

DRUGS (7)
  1. LIVALO (PITAVASTATIN) TABLETS 2 MG [Suspect]
     Indication: BLOOD CHOLESTEROL INCREASED
     Route: 048
     Dates: start: 201203, end: 201203
  2. ASA [Concomitant]
  3. ATENOLOL [Concomitant]
  4. COQ10 [Concomitant]
  5. VALSARTAN HCT [Concomitant]
  6. FUROSEMIDE [Concomitant]
  7. ANTIBIOTICS [Concomitant]

REACTIONS (6)
  - Myalgia [None]
  - Muscular weakness [None]
  - Cardiac disorder [None]
  - Expired drug administered [None]
  - Fatigue [None]
  - Pain in jaw [None]
